FAERS Safety Report 10431917 (Version 1)
Quarter: 2014Q3

REPORT INFORMATION
  Report Type: Spontaneous
  Country: US (occurrence: US)
  Receive Date: 20140905
  Receipt Date: 20140905
  Transmission Date: 20150326
  Serious: Yes (Hospitalization, Other)
  Sender: FDA-Public Use
  Company Number: US-JNJFOC-20140825625

PATIENT
  Age: 3 Year
  Sex: Male

DRUGS (4)
  1. NICOTINE. [Suspect]
     Active Substance: NICOTINE
     Indication: PRODUCT USED FOR UNKNOWN INDICATION
     Route: 065
  2. ALL OTHER THERAPEUTIC PRODUCTS [Suspect]
     Active Substance: UNSPECIFIED INGREDIENT
     Indication: PRODUCT USED FOR UNKNOWN INDICATION
     Route: 065
  3. VISINE EYE DROPS [Suspect]
     Active Substance: TETRAHYDROZOLINE HYDROCHLORIDE
     Indication: PRODUCT USED FOR UNKNOWN INDICATION
     Route: 065
  4. GELSEMIUM [Suspect]
     Active Substance: GELSEMIUM SEMPERVIRENS ROOT
     Indication: PYREXIA
     Route: 048

REACTIONS (6)
  - Munchausen^s syndrome [Unknown]
  - Lethargy [Unknown]
  - Bradycardia [Unknown]
  - Poisoning deliberate [None]
  - Poisoning [Unknown]
  - Miosis [Unknown]
